FAERS Safety Report 6852065-5 (Version None)
Quarter: 2010Q3

REPORT INFORMATION
  Report Type: 
  Country: None (occurrence: None)
  Receive Date: 20100717
  Receipt Date: 20071107
  Transmission Date: 20110219
  Serious: No
  Sender: FDA-Public Use
  Company Number: US-PFIZER INC-2007094912

PATIENT
  Sex: Male
  Weight: 80 kg

DRUGS (9)
  1. CHANTIX [Suspect]
     Indication: SMOKING CESSATION THERAPY
     Dates: start: 20071024
  2. PLAVIX [Concomitant]
  3. ACETYLSALICYLIC ACID [Concomitant]
  4. ALTACE [Concomitant]
  5. METOPROLOL [Concomitant]
  6. PRILOSEC [Concomitant]
  7. ZETIA [Concomitant]
  8. NITROGLYCERIN [Concomitant]
  9. AMBIEN [Concomitant]

REACTIONS (2)
  - DYSGEUSIA [None]
  - NAUSEA [None]
